FAERS Safety Report 5311167-5 (Version None)
Quarter: 2007Q2

REPORT INFORMATION
  Report Type: 
  Country: None (occurrence: None)
  Receive Date: 20070426
  Receipt Date: 20070426
  Transmission Date: 20071010
  Serious: No
  Sender: FDA-Public Use
  Company Number: None

PATIENT
  Sex: Male
  Weight: 106.1417 kg

DRUGS (2)
  1. CISPLATIN [Suspect]
     Dosage: 178 MG IV Q 3 WEEKS
     Route: 042
  2. DOCETAXEL [Suspect]
     Dosage: 178 MG/IV Q 3 WEEKS

REACTIONS (2)
  - NEUTROPENIA [None]
  - PYREXIA [None]
